FAERS Safety Report 9125599 (Version 1)
Quarter: 2013Q1

REPORT INFORMATION
  Report Type: Report from Study
  Country: CN (occurrence: CN)
  Receive Date: 20130121
  Receipt Date: 20130121
  Transmission Date: 20140127
  Serious: Yes (Other)
  Sender: FDA-Public Use
  Company Number: CN-GLAXOSMITHKLINE-B0860564A

PATIENT
  Sex: 0

DRUGS (2)
  1. ADEFOVIR DIPIVOXIL [Suspect]
     Indication: CHRONIC HEPATITIS B
     Dosage: 10MG PER DAY
     Route: 048
  2. LAMIVUDINE-HBV [Suspect]
     Indication: CHRONIC HEPATITIS B
     Dosage: 100MG PER DAY
     Route: 048

REACTIONS (1)
  - Blood creatinine increased [Recovered/Resolved]
